FAERS Safety Report 11991717 (Version 1)
Quarter: 2016Q1

REPORT INFORMATION
  Report Type: Spontaneous
  Country: US (occurrence: US)
  Receive Date: 20160203
  Receipt Date: 20160203
  Transmission Date: 20160526
  Serious: No
  Sender: FDA-Public Use
  Company Number: US-JNJFOC-20151204044

PATIENT
  Age: 15 Year
  Sex: Female

DRUGS (1)
  1. CHILDRENS SUDAFED NASAL DECONGESTANT [Suspect]
     Active Substance: PSEUDOEPHEDRINE HYDROCHLORIDE
     Indication: SINUS CONGESTION
     Dosage: 2 TEASPOONS
     Route: 048
     Dates: start: 20151203

REACTIONS (3)
  - Drug prescribing error [Unknown]
  - Drug administered to patient of inappropriate age [Unknown]
  - Off label use [Unknown]
